FAERS Safety Report 6388713-6 (Version None)
Quarter: 2009Q4

REPORT INFORMATION
  Report Type: 
  Country: None (occurrence: None)
  Receive Date: 20091005
  Receipt Date: 20090929
  Transmission Date: 20100525
  Serious: Yes (Hospitalization, Other)
  Sender: FDA-Public Use
  Company Number: CH-ROXANE LABORATORIES, INC.-2009-RO-01013RO

PATIENT
  Age: 75 Year

DRUGS (12)
  1. LITHIUM CARBONATE [Suspect]
     Dosage: 660 MG
  2. ACETYLSALICYLIC ACID [Suspect]
     Dosage: 100 MG
  3. METFORMIN [Suspect]
     Dosage: 500 MG
  4. ENALAPRIL MALEATE [Suspect]
     Dosage: 20 MG
  5. VENLAFAXINE [Suspect]
     Dosage: 75 MG
  6. PREGABALIN [Suspect]
     Dosage: 75 MG
  7. TAMSULOSIN HCL [Suspect]
     Dosage: 400 MCG
  8. MACROGOL [Suspect]
  9. BUPROPION HCL [Suspect]
     Dosage: 300 MG
  10. ANTIBIOTICS [Concomitant]
  11. SODIUM CHLORIDE [Concomitant]
     Indication: HYPOVOLAEMIA
  12. GLUCOSE [Concomitant]
     Indication: HYPOVOLAEMIA

REACTIONS (4)
  - DRUG TOXICITY [None]
  - HYPOVOLAEMIA [None]
  - PNEUMONIA [None]
  - RENAL FAILURE ACUTE [None]
